FAERS Safety Report 24145961 (Version 2)
Quarter: 2024Q3

REPORT INFORMATION
  Report Type: Spontaneous
  Country: US (occurrence: US)
  Receive Date: 20240729
  Receipt Date: 20240823
  Transmission Date: 20241016
  Serious: Yes (Other)
  Sender: Kilitch Healthcare
  Company Number: US-KHC-000055

PATIENT
  Sex: Female

DRUGS (2)
  1. EXTREME RELIEF LUBRICANT [Suspect]
     Active Substance: POLYETHYLENE GLYCOL 400\PROPYLENE GLYCOL
     Indication: Product used for unknown indication
     Route: 065
     Dates: start: 20221230
  2. RUGBY POLYVINYL ALCOHOL 1.4% LUBRICATING EYE DROPS [Suspect]
     Active Substance: POLYVINYL ALCOHOL
     Indication: Product used for unknown indication
     Route: 065

REACTIONS (3)
  - Eye irritation [Unknown]
  - Milia [Unknown]
  - Eye infection fungal [Unknown]

NARRATIVE: CASE EVENT DATE: 20230301
